FAERS Safety Report 9242684 (Version 1)
Quarter: 2013Q2

REPORT INFORMATION
  Report Type: Spontaneous
  Country: IT (occurrence: IT)
  Receive Date: 20130419
  Receipt Date: 20130419
  Transmission Date: 20140414
  Serious: Yes (Hospitalization)
  Sender: FDA-Public Use
  Company Number: IT-GLAXOSMITHKLINE-B0885511A

PATIENT
  Age: 85 Year
  Sex: Male

DRUGS (8)
  1. ZELITREX [Suspect]
     Indication: HERPES ZOSTER
     Dosage: 3G PER DAY
     Route: 048
     Dates: start: 20130327, end: 20130330
  2. KAYEXALATE [Concomitant]
     Indication: RENAL FAILURE CHRONIC
  3. LASIX [Concomitant]
     Indication: HYPERTENSION
  4. NORVASC [Concomitant]
  5. TORVAST [Concomitant]
  6. ALGELDRATE / MAGNESIUM HYDROXIDE [Concomitant]
  7. SODIUM BICARBONATE [Concomitant]
  8. ANTRA [Concomitant]

REACTIONS (3)
  - Hallucination, visual [Recovering/Resolving]
  - Confusional state [Recovering/Resolving]
  - Hypersensitivity [Recovering/Resolving]
